FAERS Safety Report 9735461 (Version 2)
Quarter: 2015Q3

REPORT INFORMATION
  Report Type: Spontaneous
  Country: US (occurrence: US)
  Receive Date: 20131206
  Receipt Date: 20150804
  Transmission Date: 20151125
  Serious: No
  Sender: FDA-Public Use
  Company Number: US-GILEAD-2009-0023214

PATIENT
  Age: 41 Year
  Sex: Male
  Weight: 72.57 kg

DRUGS (18)
  1. ALBUTEROL. [Concomitant]
     Active Substance: ALBUTEROL
  2. LETAIRIS [Suspect]
     Active Substance: AMBRISENTAN
     Indication: PULMONARY ARTERIAL HYPERTENSION
     Route: 048
     Dates: start: 20090716
  3. REVATIO [Concomitant]
     Active Substance: SILDENAFIL CITRATE
  4. ASPIRIN. [Concomitant]
     Active Substance: ASPIRIN
  5. ATROVENT [Concomitant]
     Active Substance: IPRATROPIUM BROMIDE
  6. RENAGEL [Concomitant]
     Active Substance: SEVELAMER HYDROCHLORIDE
  7. CARTIA XT [Concomitant]
     Active Substance: DILTIAZEM HYDROCHLORIDE
  8. VIAGRA [Concomitant]
     Active Substance: SILDENAFIL CITRATE
  9. CARVEDILOL. [Concomitant]
     Active Substance: CARVEDILOL
  10. CARDIZEM [Concomitant]
     Active Substance: DILTIAZEM HYDROCHLORIDE
  11. ZESTRIL [Concomitant]
     Active Substance: LISINOPRIL
  12. OXYGEN. [Concomitant]
     Active Substance: OXYGEN
  13. PRED FORTE [Concomitant]
     Active Substance: PREDNISOLONE ACETATE
  14. LYNOX [Concomitant]
  15. TAZTIA XT [Concomitant]
     Active Substance: DILTIAZEM HYDROCHLORIDE
  16. LISINOPRIL. [Concomitant]
     Active Substance: LISINOPRIL
  17. MINOXIDIL. [Concomitant]
     Active Substance: MINOXIDIL
  18. COUMADIN [Concomitant]
     Active Substance: WARFARIN SODIUM

REACTIONS (1)
  - Hypersomnia [Unknown]
